FAERS Safety Report 7438295-2 (Version None)
Quarter: 2011Q2

REPORT INFORMATION
  Report Type: 
  Country: None (occurrence: None)
  Receive Date: 20110421
  Receipt Date: 20110421
  Transmission Date: 20111010
  Serious: Yes (Death)
  Sender: FDA-Public Use
  Company Number: None

PATIENT
  Age: 73 Year
  Sex: Female

DRUGS (7)
  1. IMIPRAMINE [Concomitant]
  2. ASPIRIN [Concomitant]
  3. QVAR 40 [Concomitant]
  4. VICODIN [Concomitant]
  5. PROAIR HFA [Concomitant]
  6. FLONASE [Concomitant]
  7. REVLIMID [Suspect]
     Indication: MULTIPLE MYELOMA
     Dosage: 5MG DAILY ORALLY
     Route: 048
     Dates: start: 20100601, end: 20100701

REACTIONS (2)
  - FATIGUE [None]
  - HAEMATOCRIT DECREASED [None]
